FAERS Safety Report 9783120 (Version 1)
Quarter: 2013Q4

REPORT INFORMATION
  Report Type: Spontaneous
  Country: US (occurrence: None)
  Receive Date: 20131217
  Receipt Date: 20131217
  Transmission Date: 20140711
  Serious: Yes (Hospitalization)
  Sender: FDA-Public Use
  Company Number: KAMADA LTD MFR # 45056

PATIENT
  Sex: 0

DRUGS (2)
  1. GLASSIA [Suspect]
     Indication: ALPHA-1 ANTI-TRYPSIN DEFICIENCY
     Route: 042
  2. BROCHODILATORS [Concomitant]

REACTIONS (6)
  - Pneumothorax [None]
  - Acute respiratory failure [None]
  - Acidosis [None]
  - Chronic obstructive pulmonary disease [None]
  - Pneumothorax spontaneous [None]
  - Ventricular extrasystoles [None]
